FAERS Safety Report 14730663 (Version 1)
Quarter: 2018Q2

REPORT INFORMATION
  Report Type: Spontaneous
  Country: FR (occurrence: FR)
  Receive Date: 20180406
  Receipt Date: 20180406
  Transmission Date: 20180711
  Serious: Yes (Death)
  Sender: FDA-Public Use
  Company Number: FR-MYLANLABS-2018M1020032

PATIENT
  Sex: Female

DRUGS (6)
  1. BREAKYL 1 200 MICROGRAMMES, FILM ORODISPERSIBLE [Suspect]
     Active Substance: FENTANYL CITRATE
     Indication: PAIN
     Dosage: 200 ?G, 4 PATCHES PER DAY
     Dates: start: 20180226
  2. DUROGESIC [Concomitant]
     Active Substance: FENTANYL
     Indication: AMPUTATION STUMP PAIN
     Dosage: 25 ?G/H
     Dates: start: 20180319
  3. DUROGESIC [Concomitant]
     Active Substance: FENTANYL
     Dosage: 50 ?G/H
  4. BREAKYL 1 200 MICROGRAMMES, FILM ORODISPERSIBLE [Suspect]
     Active Substance: FENTANYL CITRATE
     Dosage: 200 ?G, 8 PER DAYS
     Dates: start: 20180319
  5. DUROGESIC [Concomitant]
     Active Substance: FENTANYL
     Dosage: 12 ?G/H
     Dates: start: 20180226
  6. ACTISKENAN [Concomitant]
     Active Substance: MORPHINE SULFATE
     Indication: PAIN
     Dosage: 10 MG, 6 PER DAYS
     Route: 048
     Dates: start: 20180319

REACTIONS (5)
  - Drug administration error [Unknown]
  - Malaise [Fatal]
  - Drug ineffective [Unknown]
  - Off label use [Unknown]
  - Extra dose administered [None]

NARRATIVE: CASE EVENT DATE: 20180226
